FAERS Safety Report 8005449-6 (Version None)
Quarter: 2011Q4

REPORT INFORMATION
  Report Type: 
  Country: None (occurrence: None)
  Receive Date: 20111223
  Receipt Date: 20111216
  Transmission Date: 20120403
  Serious: Yes (Hospitalization)
  Sender: FDA-Public Use
  Company Number: US-JNJFOC-20111200642

PATIENT
  Sex: Female
  Weight: 61.1 kg

DRUGS (8)
  1. METHOTREXATE [Concomitant]
  2. FOLIC ACID [Concomitant]
  3. REMICADE [Suspect]
     Indication: INFLAMMATORY BOWEL DISEASE
     Route: 042
     Dates: start: 20061013
  4. VITAMIN D [Concomitant]
  5. CALCIUM [Concomitant]
  6. AMOCILLINE [Concomitant]
  7. IRON [Concomitant]
  8. REMICADE [Suspect]
     Route: 042
     Dates: start: 20111129

REACTIONS (1)
  - CROHN'S DISEASE [None]
